FAERS Safety Report 8496336-8 (Version None)
Quarter: 2012Q2

REPORT INFORMATION
  Report Type: 
  Country: None (occurrence: None)
  Receive Date: 20120405
  Receipt Date: 20100405
  Transmission Date: 20120825
  Serious: Yes (Other)
  Sender: FDA-Public Use
  Company Number: PHHY2010US21637

PATIENT
  Sex: Female

DRUGS (2)
  1. RECLAST [Suspect]
     Indication: OSTEOPOROSIS
     Dosage: 5 MG, ONCE YEARLY, IV INFUSION, 5 MG, ONCE YEARLY, IV INFUSION
     Route: 042
     Dates: start: 20080729
  2. RECLAST [Suspect]
     Indication: OSTEOPOROSIS
     Dosage: 5 MG, ONCE YEARLY, IV INFUSION, 5 MG, ONCE YEARLY, IV INFUSION
     Route: 042
     Dates: start: 20090729

REACTIONS (1)
  - ATRIAL FIBRILLATION [None]
